FAERS Safety Report 5576193-X (Version None)
Quarter: 2007Q4

REPORT INFORMATION
  Report Type: 
  Country: None (occurrence: None)
  Receive Date: 20071228
  Receipt Date: 20071221
  Transmission Date: 20080405
  Serious: Yes (Death)
  Sender: FDA-Public Use
  Company Number: US-ROCHE-535418

PATIENT
  Age: 66 Year
  Sex: Male
  Weight: 154.2 kg

DRUGS (5)
  1. CELLCEPT [Suspect]
     Indication: MYASTHENIA GRAVIS
     Route: 048
     Dates: start: 20071001, end: 20071130
  2. AMARYL [Concomitant]
     Route: 048
  3. AVANDAMET [Concomitant]
     Dosage: THE PATIENT WAS ON AVANDAMET 2 MG/1000 MG TWICE DAILY.
     Route: 048
  4. METOPROLOL [Concomitant]
     Route: 048
  5. NORVASC [Concomitant]
     Route: 048

REACTIONS (1)
  - SUDDEN DEATH [None]
